FAERS Safety Report 7000469 (Version 1)
Quarter: 2020Q3

REPORT INFORMATION
  Report Type: Report from Study
  Country: US (occurrence: US)
  Receive Date: 20090522
  Receipt Date: 20090522
  Transmission Date: 20201104
  Serious: Yes (Hospitalization)
  Sender: FDA-Public Use
  Company Number: US-ROCHE-633275

PATIENT
  Age: 76 Year
  Sex: Female

DRUGS (6)
  1. NIASPAN [Concomitant]
     Active Substance: NIACIN
  2. IBANDRONIC ACID. [Suspect]
     Active Substance: IBANDRONIC ACID
     Indication: OSTEOPOROSIS
     Route: 065
     Dates: start: 2006
  3. ASPIRIN. [Concomitant]
     Active Substance: ASPIRIN
     Dosage: DRUG REPORTED AS: BABY ASPIRIN.
  4. VYTORIN [Concomitant]
     Active Substance: EZETIMIBE\SIMVASTATIN
  5. DIOVAN [Concomitant]
     Active Substance: VALSARTAN
     Dosage: DRUG REPORTED AS: DIOVAN XL.
  6. FLOTAC [Concomitant]
     Active Substance: DICLOFENAC SODIUM
     Dosage: DRUG REPORTED AS: FLOTEX.

REACTIONS (1)
  - Renal failure [Unknown]
